FAERS Safety Report 7578555-8 (Version None)
Quarter: 2011Q2

REPORT INFORMATION
  Report Type: 
  Country: None (occurrence: None)
  Receive Date: 20110628
  Receipt Date: 20110624
  Transmission Date: 20111010
  Serious: Yes (Death, Life-Threatening)
  Sender: FDA-Public Use
  Company Number: DE-JNJFOC-20110611612

PATIENT
  Age: 84 Year
  Sex: Male

DRUGS (2)
  1. REOPRO [Suspect]
     Dosage: BOLUS
     Route: 042
     Dates: start: 20110216, end: 20110216
  2. REOPRO [Suspect]
     Indication: MYOCARDIAL INFARCTION
     Dosage: INTRAVENOUS DRIP
     Route: 042
     Dates: start: 20110216, end: 20110216

REACTIONS (3)
  - VENTRICLE RUPTURE [None]
  - PULMONARY OEDEMA [None]
  - CORONARY ARTERY OCCLUSION [None]
